FAERS Safety Report 7203107-9 (Version None)
Quarter: 2010Q4

REPORT INFORMATION
  Report Type: 
  Country: None (occurrence: None)
  Receive Date: 20101229
  Receipt Date: 20101216
  Transmission Date: 20110411
  Serious: Yes (Other)
  Sender: FDA-Public Use
  Company Number: FR-GENENTECH-311631

PATIENT

DRUGS (1)
  1. RITUXIMAB [Suspect]
     Indication: ANTIFUNGAL PROPHYLAXIS
     Dosage: 375 MG/M2, UNK
     Route: 065
     Dates: start: 20050101, end: 20100101

REACTIONS (8)
  - ACUTE GRAFT VERSUS HOST DISEASE [None]
  - ADENOVIRUS INFECTION [None]
  - ASPERGILLOSIS [None]
  - BACTERIAL INFECTION [None]
  - CYTOMEGALOVIRUS INFECTION [None]
  - HERPES SIMPLEX [None]
  - PNEUMOCYSTIS JIROVECI PNEUMONIA [None]
  - TOXOPLASMOSIS [None]
